FAERS Safety Report 4513195-6 (Version None)
Quarter: 2004Q4

REPORT INFORMATION
  Report Type: 
  Country: None (occurrence: None)
  Receive Date: 20041130
  Receipt Date: 20041119
  Transmission Date: 20050328
  Serious: Yes (Hospitalization)
  Sender: FDA-Public Use
  Company Number: FR-MERCK-0411FRA00081

PATIENT
  Age: 80 Year
  Sex: Female

DRUGS (17)
  1. COZAAR [Suspect]
     Route: 048
  2. FUROSEMIDE [Suspect]
     Route: 048
  3. SPIRONOLACTONE [Suspect]
     Route: 048
  4. ACEPROMETAZINE MALEATE AND MEPROBAMATE [Concomitant]
     Indication: INSOMNIA
     Route: 048
  5. NITROGLYCERIN [Concomitant]
     Indication: ANGINA PECTORIS
     Route: 061
  6. NITROGLYCERIN [Concomitant]
     Route: 048
  7. AMIODARONE [Concomitant]
     Indication: ATRIAL FIBRILLATION
     Route: 048
     Dates: end: 20040927
  8. FLUINDIONE [Concomitant]
     Indication: THROMBOSIS PROPHYLAXIS
     Route: 048
  9. NICORANDIL [Concomitant]
     Indication: ANGINA PECTORIS
     Route: 048
     Dates: end: 20040927
  10. ATORVASTATIN CALCIUM [Suspect]
     Indication: HYPERCHOLESTEROLAEMIA
     Route: 048
     Dates: end: 20040927
  11. BROMAZEPAM [Concomitant]
     Indication: ANXIETY
     Route: 048
  12. ALBUTEROL SULFATE [Concomitant]
     Indication: ASTHMA
     Route: 055
  13. FENOTEROL AND IPRATROPIUM BROMIDE [Concomitant]
     Indication: ASTHMA
     Route: 055
  14. CLOMIPRAMINE HYDROCHLORIDE [Concomitant]
     Indication: DEPRESSION
     Route: 048
  15. ACETAMINOPHEN AND TRAMADOL HYDROCHLORIDE [Concomitant]
     Indication: PAIN
     Route: 048
  16. OMEPRAZOLE [Concomitant]
     Indication: PROPHYLAXIS AGAINST GASTROINTESTINAL ULCER
     Route: 048
  17. IRON (UNSPECIFIED) [Concomitant]
     Indication: ANAEMIA
     Route: 048

REACTIONS (4)
  - FALL [None]
  - HEAD INJURY [None]
  - RENAL FAILURE [None]
  - RHABDOMYOLYSIS [None]
